FAERS Safety Report 10982696 (Version 1)
Quarter: 2015Q2

REPORT INFORMATION
  Report Type: Spontaneous
  Country: US (occurrence: None)
  Receive Date: 20150402
  Receipt Date: 20150402
  Transmission Date: 20150821
  Serious: Yes (Other)
  Sender: FDA-Public Use
  Company Number: None

PATIENT
  Age: 50 Year
  Sex: Female
  Weight: 135.17 kg

DRUGS (11)
  1. XARELTO [Concomitant]
     Active Substance: RIVAROXABAN
  2. DEXTROAMPHETAMINE [Concomitant]
     Active Substance: DEXTROAMPHETAMINE
  3. BIOTIN [Concomitant]
     Active Substance: BIOTIN
  4. URO CIT K [Concomitant]
  5. NASONEX [Concomitant]
     Active Substance: MOMETASONE FUROATE
  6. AMITIZA [Concomitant]
     Active Substance: LUBIPROSTONE
  7. CARVEDILOL. [Concomitant]
     Active Substance: CARVEDILOL
  8. OXYCODONE [Concomitant]
     Active Substance: OXYCODONE
  9. OMEPRAZONE [Concomitant]
  10. XARELTO [Suspect]
     Active Substance: RIVAROXABAN
     Indication: PULMONARY EMBOLISM
     Dosage: TAKEN BY MOUTH
     Dates: start: 20141220
  11. FENTANYL TRANSDERMAL SYSTEM [Concomitant]
     Active Substance: FENTANYL

REACTIONS (1)
  - Alopecia [None]

NARRATIVE: CASE EVENT DATE: 20150126
